FAERS Safety Report 20308885 (Version 2)
Quarter: 2022Q1

REPORT INFORMATION
  Report Type: Spontaneous
  Country: US (occurrence: US)
  Receive Date: 20220107
  Receipt Date: 20220210
  Transmission Date: 20220424
  Serious: No
  Sender: FDA-Public Use
  Company Number: US-NOVARTISTESTPH-NVSC2022US002296

PATIENT
  Age: 67 Year
  Sex: Female

DRUGS (2)
  1. KESIMPTA [Suspect]
     Active Substance: OFATUMUMAB
     Indication: Multiple sclerosis
     Dosage: UNK
     Route: 065
     Dates: start: 20211221
  2. KESIMPTA [Suspect]
     Active Substance: OFATUMUMAB
     Dosage: 20 MG, UNKNOWN
     Route: 058
     Dates: start: 20220208, end: 20220208

REACTIONS (3)
  - Accidental exposure to product [Recovered/Resolved]
  - Device breakage [Unknown]
  - Needle issue [Unknown]

NARRATIVE: CASE EVENT DATE: 20211228
